FAERS Safety Report 20687508 (Version 6)
Quarter: 2022Q2

REPORT INFORMATION
  Report Type: Report from Study
  Country: US (occurrence: US)
  Receive Date: 20220408
  Receipt Date: 20220609
  Transmission Date: 20220720
  Serious: Yes (Other)
  Sender: FDA-Public Use
  Company Number: US-NOVARTISTESTPH-NVSC2022US079780

PATIENT
  Sex: Male

DRUGS (2)
  1. ENTRESTO [Suspect]
     Active Substance: SACUBITRIL\VALSARTAN
     Indication: Product used for unknown indication
     Dosage: UNK
     Route: 048
  2. ENTRESTO [Suspect]
     Active Substance: SACUBITRIL\VALSARTAN
     Dosage: 1 DOSAGE FORM, BID (49/51 MG)
     Route: 048

REACTIONS (12)
  - Atrial fibrillation [Unknown]
  - Dyspnoea [Unknown]
  - Loss of consciousness [Unknown]
  - Hypertension [Unknown]
  - Pain in extremity [Unknown]
  - Hyperhidrosis [Recovered/Resolved]
  - Dehydration [Unknown]
  - Fatigue [Unknown]
  - Cough [Unknown]
  - Dizziness [Recovered/Resolved]
  - Gait disturbance [Unknown]
  - Product dose omission issue [Unknown]
